FAERS Safety Report 6139591-1 (Version None)
Quarter: 2009Q2

REPORT INFORMATION
  Report Type: 
  Country: None (occurrence: None)
  Receive Date: 20090401
  Receipt Date: 20090327
  Transmission Date: 20091009
  Serious: Yes (Death, Hospitalization)
  Sender: FDA-Public Use
  Company Number: US-GILEAD-2009-0021177

PATIENT
  Sex: Female

DRUGS (10)
  1. LETAIRIS [Suspect]
     Indication: PULMONARY ARTERIAL HYPERTENSION
     Route: 048
     Dates: start: 20080316, end: 20090223
  2. DEMADEX [Concomitant]
  3. TRICOR [Concomitant]
  4. PRAVASTATIN [Concomitant]
  5. CARTIA XT [Concomitant]
  6. REVATIO [Concomitant]
  7. ARICEPT [Concomitant]
  8. FLEXERIL [Concomitant]
  9. VICODIN [Concomitant]
  10. AMBIEN [Concomitant]

REACTIONS (3)
  - CEREBROVASCULAR ACCIDENT [None]
  - PULMONARY ARTERIAL HYPERTENSION [None]
  - RENAL FAILURE [None]
